FAERS Safety Report 8608113-5 (Version None)
Quarter: 2012Q3

REPORT INFORMATION
  Report Type: 
  Country: None (occurrence: None)
  Receive Date: 20120821
  Receipt Date: 20120813
  Transmission Date: 20120928
  Serious: Yes (Hospitalization, Other)
  Sender: FDA-Public Use
  Company Number: US-ASTELLAS-2012US006960

PATIENT
  Age: 51 Year
  Sex: Female

DRUGS (9)
  1. PROGRAF [Suspect]
     Indication: PRODUCT USED FOR UNKNOWN INDICATION
     Dosage: UNK
     Route: 065
  2. FLUDARABINE PHOSPHATE [Suspect]
     Indication: ACUTE LYMPHOCYTIC LEUKAEMIA
     Dosage: 355 MG, TOTAL DOSE
     Route: 065
     Dates: start: 20120123
  3. SPRYCEL [Suspect]
     Dosage: UNK
     Route: 048
     Dates: start: 20120426
  4. CAMPATH [Suspect]
     Dosage: UNK
     Route: 065
     Dates: start: 20120501
  5. MELPHALAN HYDROCHLORIDE [Suspect]
     Indication: ACUTE LYMPHOCYTIC LEUKAEMIA
     Dosage: 333 MG, TOTAL DOSE
     Route: 065
     Dates: start: 20120123
  6. MELPHALAN HYDROCHLORIDE [Suspect]
     Dosage: UNK
     Dates: start: 20120502
  7. SPRYCEL [Suspect]
     Indication: ACUTE LYMPHOCYTIC LEUKAEMIA
     Dosage: UNK
     Route: 048
     Dates: start: 20120123
  8. CAMPATH [Suspect]
     Indication: ACUTE LYMPHOCYTIC LEUKAEMIA
     Dosage: 100 MG, UNKNOWN/D
     Route: 065
     Dates: start: 20120123
  9. FLUDARABINE PHOSPHATE [Suspect]
     Dosage: UNK
     Route: 065
     Dates: start: 20120501

REACTIONS (7)
  - DIARRHOEA [None]
  - MICROANGIOPATHIC HAEMOLYTIC ANAEMIA [None]
  - RENAL FAILURE ACUTE [None]
  - MUSCULAR WEAKNESS [None]
  - CLOSTRIDIUM DIFFICILE COLITIS [None]
  - HYPOKALAEMIA [None]
  - NAUSEA [None]
